FAERS Safety Report 16668532 (Version 2)
Quarter: 2019Q3

REPORT INFORMATION
  Report Type: Report from Study
  Country: PL (occurrence: PL)
  Receive Date: 20190805
  Receipt Date: 20190902
  Transmission Date: 20191004
  Serious: Yes (Hospitalization)
  Sender: FDA-Public Use
  Company Number: PL-PFIZER INC-2019325822

PATIENT
  Age: 70 Year
  Sex: Female
  Weight: 60 kg

DRUGS (7)
  1. TOFACITINIB CITRATE [Suspect]
     Active Substance: TOFACITINIB CITRATE
     Indication: RHEUMATOID ARTHRITIS
     Dosage: 5 MG, 2X/DAY
     Route: 048
     Dates: start: 20160830
  2. LOKREN [Concomitant]
     Active Substance: BETAXOLOL HYDROCHLORIDE
     Indication: HYPERTENSION
     Dosage: 20.0 MG, 1X/DAY
     Route: 048
     Dates: start: 2006
  3. EBETREXAT [METHOTREXATE] [Concomitant]
     Active Substance: METHOTREXATE
     Indication: RHEUMATOID ARTHRITIS
     Dosage: 15.0 MG, WEEKLY
     Dates: start: 20160420
  4. DICLO DUO [Concomitant]
     Active Substance: DICLOFENAC SODIUM
     Indication: RHEUMATOID ARTHRITIS
     Dosage: 150.0 MG, AS NEEDED
     Route: 048
     Dates: start: 20160108
  5. POLPRAZOL [OMEPRAZOLE] [Concomitant]
     Active Substance: OMEPRAZOLE
     Indication: PROPHYLAXIS
     Dosage: 20.0 MG, 1X/DAY
     Route: 048
     Dates: start: 20160108
  6. METYPRED [METHYLPREDNISOLONE] [Concomitant]
     Active Substance: METHYLPREDNISOLONE
     Indication: RHEUMATOID ARTHRITIS
     Dosage: 2.0 MG, 1X/DAY
     Route: 048
     Dates: start: 20160108
  7. ACIDUM FOLICUM [Concomitant]
     Active Substance: FOLIC ACID
     Indication: RHEUMATOID ARTHRITIS
     Dosage: 15.0 MG, WEEKLY
     Route: 048
     Dates: start: 20160108

REACTIONS (1)
  - Myocardial ischaemia [Recovered/Resolved]

NARRATIVE: CASE EVENT DATE: 20190716
